FAERS Safety Report 5585500-3 (Version None)
Quarter: 2008Q1

REPORT INFORMATION
  Report Type: 
  Country: None (occurrence: None)
  Receive Date: 20080109
  Receipt Date: 20071204
  Transmission Date: 20080703
  Serious: No
  Sender: FDA-Public Use
  Company Number: US-BAYER-200714048BCC

PATIENT
  Age: 41 Year
  Sex: Male
  Weight: 100 kg

DRUGS (4)
  1. ALEVE [Suspect]
     Indication: PAIN IN EXTREMITY
     Dosage: UNIT DOSE: 220 MG
     Route: 048
     Dates: start: 20071104
  2. INSULIN [Concomitant]
  3. HIGH BLOOD PRESSURE MEDICATION [Concomitant]
  4. HIGH CHOLESTEROL MEDICATION [Concomitant]

REACTIONS (1)
  - BLOOD GLUCOSE INCREASED [None]
